FAERS Safety Report 7428956-3 (Version None)
Quarter: 2011Q2

REPORT INFORMATION
  Report Type: 
  Country: None (occurrence: None)
  Receive Date: 20110418
  Receipt Date: 20110418
  Transmission Date: 20111010
  Serious: Yes (Hospitalization)
  Sender: FDA-Public Use
  Company Number: None

PATIENT
  Sex: Male
  Weight: 82.1 kg

DRUGS (1)
  1. TEMOZOLOMIDE [Suspect]
     Dosage: 1600 MG

REACTIONS (4)
  - BLOOD URINE PRESENT [None]
  - WEIGHT DECREASED [None]
  - BACTERIAL TEST POSITIVE [None]
  - PYREXIA [None]
